FAERS Safety Report 9840283 (Version 1)
Quarter: 2013Q4

REPORT INFORMATION
  Report Type: Spontaneous
  Country: US (occurrence: None)
  Receive Date: 20131223
  Receipt Date: 20131223
  Transmission Date: 20140711
  Serious: Yes (Other)
  Sender: FDA-Public Use
  Company Number: 219779LEO

PATIENT
  Age: 58 Year
  Sex: Male

DRUGS (3)
  1. VITAMIN C (ASCORBIC ACID) [Concomitant]
  2. PICATO [Suspect]
     Indication: ACTINIC KERATOSIS
     Dosage: (1 IN 1 D), TOPICAL
     Route: 061
     Dates: start: 20121128, end: 20121129
  3. ALEVE (NAPROXEN SODIUM) [Concomitant]

REACTIONS (7)
  - Swelling face [None]
  - Rash pustular [None]
  - Sunburn [None]
  - Drug administered at inappropriate site [None]
  - Incorrect dose administered [None]
  - Incorrect dose administered [None]
  - Incorrect drug administration duration [None]
